FAERS Safety Report 20998938 (Version 1)
Quarter: 2022Q2

REPORT INFORMATION
  Report Type: Spontaneous
  Country: US (occurrence: US)
  Receive Date: 20220623
  Receipt Date: 20220623
  Transmission Date: 20220721
  Serious: No
  Sender: FDA-Public Use
  Company Number: US-Cardinal Health 414-NPHS-AE-21-6

PATIENT
  Age: 40 Year
  Sex: Female

DRUGS (1)
  1. SODIUM IODIDE I-123 [Suspect]
     Active Substance: SODIUM IODIDE I-123
     Indication: Scan thyroid gland
     Route: 048
     Dates: start: 20210629, end: 20210629

REACTIONS (3)
  - Vomiting [Unknown]
  - Malaise [Unknown]
  - Iodine uptake decreased [Unknown]

NARRATIVE: CASE EVENT DATE: 20210629
